FAERS Safety Report 21328194 (Version 1)
Quarter: 2022Q3

REPORT INFORMATION
  Report Type: Spontaneous
  Country: CA (occurrence: CA)
  Receive Date: 20220913
  Receipt Date: 20220913
  Transmission Date: 20221026
  Serious: Yes (Other)
  Sender: FDA-Public Use
  Company Number: CA-NOVARTISPH-NVSC2022CA194605

PATIENT
  Sex: Female

DRUGS (23)
  1. ILARIS [Suspect]
     Active Substance: CANAKINUMAB
     Indication: Product used for unknown indication
     Dosage: 150 MG
     Route: 058
     Dates: start: 201211
  2. ILARIS [Suspect]
     Active Substance: CANAKINUMAB
     Dosage: 150 MG (FREQUENCY: EVERY 8 WEEK)
     Route: 058
     Dates: start: 201406
  3. ILARIS [Suspect]
     Active Substance: CANAKINUMAB
     Dosage: 300 MG (FREQUENCY: EVERY 8 WEEK)
     Route: 058
     Dates: start: 201501
  4. ILARIS [Suspect]
     Active Substance: CANAKINUMAB
     Dosage: 300 MG (FREQUENCY: EVERY 7 WEEK)
     Route: 058
     Dates: start: 201609
  5. ILARIS [Suspect]
     Active Substance: CANAKINUMAB
     Dosage: 300 MG, Q4W
     Route: 058
     Dates: start: 201708, end: 201806
  6. METHOTREXATE [Suspect]
     Active Substance: METHOTREXATE
     Indication: Product used for unknown indication
     Dosage: 25 MG, QW
     Route: 058
     Dates: start: 201109, end: 201302
  7. COLCHICINE [Suspect]
     Active Substance: COLCHICINE
     Indication: Product used for unknown indication
     Dosage: 0.6 MG, TID (START DATE: WAS UNKNOWN DATE IN FEB YEAR UNKNOWN)
     Route: 048
     Dates: end: 201103
  8. PLAQUENIL [Concomitant]
     Active Substance: HYDROXYCHLOROQUINE SULFATE
     Indication: Spondyloarthropathy
     Dosage: 200 MG, BID
     Route: 065
     Dates: start: 201005, end: 201107
  9. PANECTYL [Concomitant]
     Indication: Product used for unknown indication
     Dosage: UNK
     Route: 065
  10. PREDNISONE [Concomitant]
     Active Substance: PREDNISONE
     Indication: Still^s disease
     Dosage: UNK, (DOSE UPTO 50 MG DAILY EPISODICALLY)
     Route: 065
     Dates: start: 2010
  11. ACTEMRA [Concomitant]
     Active Substance: TOCILIZUMAB
     Indication: Product used for unknown indication
     Dosage: UNK, QMO
     Route: 065
     Dates: start: 201110, end: 201209
  12. KINERET [Concomitant]
     Active Substance: ANAKINRA
     Indication: Product used for unknown indication
     Dosage: 100 MG
     Route: 058
     Dates: end: 201210
  13. KINERET [Concomitant]
     Active Substance: ANAKINRA
     Dosage: 200 MG (UPTITRATING TO 200 MG)
     Route: 058
     Dates: end: 201210
  14. ADVAIR HFA [Concomitant]
     Active Substance: FLUTICASONE PROPIONATE\SALMETEROL XINAFOATE
     Indication: Asthma
     Dosage: UNK, PRN
     Route: 065
  15. VENTOLIN [Concomitant]
     Active Substance: ALBUTEROL SULFATE
     Indication: Asthma
     Dosage: UNK
     Route: 065
  16. WELLBUTRIN [Concomitant]
     Active Substance: BUPROPION HYDROCHLORIDE
     Indication: Depression
     Dosage: UNK
     Route: 065
  17. PANTOPRAZOLE MAGNESIUM [Concomitant]
     Active Substance: PANTOPRAZOLE MAGNESIUM
     Indication: Gastrooesophageal reflux disease
     Dosage: UNK, BIW
     Route: 065
  18. THYROXINE [Concomitant]
     Active Substance: LEVOTHYROXINE
     Indication: Product used for unknown indication
     Dosage: UNK (SUPPRESSIVE DOSE)
     Route: 065
  19. ACLASTA [Concomitant]
     Active Substance: ZOLEDRONIC ACID
     Indication: Spinal fracture
     Dosage: UNK
     Route: 065
  20. VITAMIN D [Concomitant]
     Active Substance: VITAMIN D NOS
     Indication: Spinal fracture
     Dosage: UNK
     Route: 065
  21. LIPITOR [Concomitant]
     Active Substance: ATORVASTATIN CALCIUM
     Indication: Product used for unknown indication
     Dosage: 40 MG
     Route: 065
  22. LIPITOR [Concomitant]
     Active Substance: ATORVASTATIN CALCIUM
     Dosage: 20 MG
     Route: 065
  23. CANNABIS SATIVA SUBSP. INDICA TOP [Concomitant]
     Active Substance: CANNABIS SATIVA SUBSP. INDICA TOP
     Indication: Inflammation
     Dosage: UNK
     Route: 065

REACTIONS (14)
  - Cryopyrin associated periodic syndrome [Unknown]
  - Bone pain [Unknown]
  - Myalgia [Unknown]
  - Pyrexia [Unknown]
  - Headache [Unknown]
  - Diarrhoea [Unknown]
  - Abdominal pain [Unknown]
  - Chest pain [Unknown]
  - Dyspnoea [Unknown]
  - Rash [Unknown]
  - Fatigue [Unknown]
  - Malaise [Unknown]
  - Serum amyloid A protein increased [Unknown]
  - Drug ineffective [Unknown]
